FAERS Safety Report 9656054 (Version 1)
Quarter: 2013Q4

REPORT INFORMATION
  Report Type: Spontaneous
  Country: FR (occurrence: FR)
  Receive Date: 20131030
  Receipt Date: 20131030
  Transmission Date: 20140711
  Serious: Yes (Hospitalization)
  Sender: FDA-Public Use
  Company Number: FR-JNJFOC-20131013260

PATIENT
  Age: 72 Year
  Sex: Male

DRUGS (8)
  1. HALDOL DECANOAS [Suspect]
     Indication: PSYCHOTIC DISORDER
     Route: 030
     Dates: start: 20030320, end: 20060811
  2. PRIMPERAN [Suspect]
     Indication: PRODUCT USED FOR UNKNOWN INDICATION
     Route: 048
     Dates: start: 20060606, end: 20060811
  3. PARKINANE [Suspect]
     Indication: PARKINSONISM
     Dosage: INITIATED SINCE AT LIST 1 YEAR
     Route: 048
     Dates: end: 20060811
  4. HEPT-A-MYL [Concomitant]
     Indication: HYPOTENSION
     Route: 048
     Dates: start: 20050607, end: 20060811
  5. ELISOR [Concomitant]
     Indication: HYPERCHOLESTEROLAEMIA
     Route: 048
     Dates: start: 2003
  6. FONZYLANE [Concomitant]
     Indication: ARTERITIS
     Route: 048
     Dates: start: 2003
  7. JOSIR [Concomitant]
     Indication: PROSTATOMEGALY
     Route: 048
     Dates: start: 2003
  8. MOPRAL [Concomitant]
     Indication: PRODUCT USED FOR UNKNOWN INDICATION
     Route: 048
     Dates: start: 20130214

REACTIONS (2)
  - Colitis ischaemic [Recovered/Resolved]
  - Inappropriate schedule of drug administration [Unknown]
